FAERS Safety Report 11618638 (Version 3)
Quarter: 2015Q4

REPORT INFORMATION
  Report Type: Spontaneous
  Country: IT (occurrence: IT)
  Receive Date: 20151012
  Receipt Date: 20151214
  Transmission Date: 20160304
  Serious: Yes (Other)
  Sender: FDA-Public Use
  Company Number: IT-ACCORD-034219

PATIENT
  Age: 50 Year
  Sex: Female

DRUGS (3)
  1. ERBITUX [Suspect]
     Active Substance: CETUXIMAB
     Indication: RECTAL CANCER
     Route: 042
     Dates: start: 20150626
  2. IRINOTECAN [Suspect]
     Active Substance: IRINOTECAN
     Indication: RECTAL CANCER
     Route: 042
     Dates: start: 20150512
  3. CAPECITABINE ACCORD [Suspect]
     Active Substance: CAPECITABINE
     Indication: RECTAL CANCER
     Route: 042
     Dates: start: 20150512

REACTIONS (2)
  - Dysentery [Recovering/Resolving]
  - Rash [Recovering/Resolving]

NARRATIVE: CASE EVENT DATE: 20150923
